FAERS Safety Report 25929607 (Version 2)
Quarter: 2025Q4

REPORT INFORMATION
  Report Type: Spontaneous
  Country: EU (occurrence: EU)
  Receive Date: 20251016
  Receipt Date: 20251106
  Transmission Date: 20260117
  Serious: Yes (Other)
  Sender: BAYER HEALTHCARE PHARMACEUTICALS INC.
  Company Number: None

PATIENT
  Age: 48 Year
  Sex: Female

DRUGS (2)
  1. AVELOX [Suspect]
     Active Substance: MOXIFLOXACIN HYDROCHLORIDE
     Indication: Upper respiratory tract infection
     Dosage: TAKEN 1 TABLET IN THE MORNING (DISCONTINUED ON THE 4TH DAY  AFTER THE 4TH TABLET)
     Route: 048
     Dates: start: 20250909, end: 20250912
  2. PANTOPRAZOLE SODIUM [Concomitant]
     Active Substance: PANTOPRAZOLE SODIUM
     Dosage: 20 MG

REACTIONS (23)
  - Yellow skin [Not Recovered/Not Resolved]
  - Dyspepsia [Not Recovered/Not Resolved]
  - Liver function test increased [Recovering/Resolving]
  - Tendon rupture [Not Recovered/Not Resolved]
  - Inflammatory marker increased [Unknown]
  - Tendonitis [Not Recovered/Not Resolved]
  - Chills [Unknown]
  - Visual impairment [Recovering/Resolving]
  - Vomiting [Not Recovered/Not Resolved]
  - Hyperhidrosis [Not Recovered/Not Resolved]
  - Arthralgia [Not Recovered/Not Resolved]
  - Nystagmus [Recovered/Resolved]
  - Gastrointestinal sounds abnormal [Recovered/Resolved]
  - Dizziness [Recovering/Resolving]
  - Dysgeusia [Recovered/Resolved]
  - Restlessness [Recovered/Resolved]
  - Dry mouth [Recovered/Resolved]
  - Sleep disorder [Recovered/Resolved]
  - Arthralgia [Not Recovered/Not Resolved]
  - Tendon disorder [Not Recovered/Not Resolved]
  - Hypoaesthesia [Not Recovered/Not Resolved]
  - Paraesthesia [Not Recovered/Not Resolved]
  - Vision blurred [Recovering/Resolving]

NARRATIVE: CASE EVENT DATE: 20250910
